FAERS Safety Report 16570501 (Version 1)
Quarter: 2019Q3

REPORT INFORMATION
  Report Type: Spontaneous
  Country: US (occurrence: US)
  Receive Date: 20190715
  Receipt Date: 20190715
  Transmission Date: 20191004
  Serious: Yes (Other)
  Sender: FDA-Public Use
  Company Number: US-GW PHARMA-201907USGW2375

PATIENT

DRUGS (4)
  1. EPIDIOLEX [Suspect]
     Active Substance: CANNABIDIOL
     Indication: LENNOX-GASTAUT SYNDROME
     Dosage: 12.0 MG/KG, 300 MILLIGRAM, BID
     Route: 048
     Dates: start: 201903, end: 201906
  2. DILANTIN SODIUM [Suspect]
     Active Substance: PHENYTOIN SODIUM
     Indication: PRODUCT USED FOR UNKNOWN INDICATION
     Dosage: UNK
     Route: 065
  3. EPIDIOLEX [Suspect]
     Active Substance: CANNABIDIOL
     Dosage: 10.0 MG/KG, 500 MILLIGRAM, QD (300 MG AM ; 200 MG PM)
     Route: 048
     Dates: start: 201906
  4. ONFI [Concomitant]
     Active Substance: CLOBAZAM
     Indication: PRODUCT USED FOR UNKNOWN INDICATION
     Dosage: UNK
     Route: 065

REACTIONS (7)
  - Coordination abnormal [Unknown]
  - Fall [Unknown]
  - Abnormal behaviour [Recovering/Resolving]
  - Seizure [Unknown]
  - Face injury [Unknown]
  - Drug level increased [Recovering/Resolving]
  - Balance disorder [Unknown]

NARRATIVE: CASE EVENT DATE: 201906
